FAERS Safety Report 7513939-5 (Version None)
Quarter: 2011Q2

REPORT INFORMATION
  Report Type: 
  Country: None (occurrence: None)
  Receive Date: 20110531
  Receipt Date: 20110512
  Transmission Date: 20111010
  Serious: Yes (Death, Hospitalization, Other)
  Sender: FDA-Public Use
  Company Number: PHHY2011DK32098

PATIENT
  Age: 46 Year
  Sex: Female

DRUGS (2)
  1. CARBOPLATIN [Suspect]
     Indication: SMALL CELL LUNG CANCER STAGE UNSPECIFIED
     Dosage: AUC 5
  2. ETOPOSIDE [Suspect]
     Indication: SMALL CELL LUNG CANCER STAGE UNSPECIFIED
     Dosage: 120 MG/M2, UNK

REACTIONS (21)
  - GENERAL PHYSICAL HEALTH DETERIORATION [None]
  - ESCHERICHIA TEST POSITIVE [None]
  - NEUTROPENIA [None]
  - HYPOTENSION [None]
  - NEOPLASM MALIGNANT [None]
  - DIARRHOEA [None]
  - KLEBSIELLA TEST POSITIVE [None]
  - LOCAL SWELLING [None]
  - VOMITING [None]
  - ASCITES [None]
  - GASTROINTESTINAL NECROSIS [None]
  - THROMBOCYTOPENIA [None]
  - SUPERIOR VENA CAVA SYNDROME [None]
  - NEUTROPENIC COLITIS [None]
  - ABDOMINAL PAIN [None]
  - TACHYCARDIA [None]
  - OEDEMA [None]
  - INFLAMMATION [None]
  - LEUKOPENIA [None]
  - GASTROINTESTINAL SOUNDS ABNORMAL [None]
  - PYREXIA [None]
